FAERS Safety Report 7333215 (Version 5)
Quarter: 2012Q4

REPORT INFORMATION
  Report Type: 
  Country: US (occurrence: US)
  Receive Date: 20100326
  Receipt Date: 20121025
  Transmission Date: 20130627
  Serious: Yes (Hospitalization, Other)
  Sender: FDA-Public Use
  Company Number: PHEH2010US03169

PATIENT
  Sex: Male

DRUGS (12)
  1. GLEEVEC [Suspect]
     Indication: CHRONIC MYELOID LEUKAEMIA
     Dosage: 400 mg, QD
     Route: 048
  2. GLEEVEC [Suspect]
     Dosage: 100 mg, TID
     Route: 048
     Dates: start: 20110428
  3. TRICOR [Concomitant]
  4. LIPITOR [Concomitant]
  5. NIASPAN [Concomitant]
  6. METFORMINE [Concomitant]
  7. ASPIRIN [Concomitant]
  8. NEXIUM [Concomitant]
  9. LISINOPRIL [Concomitant]
  10. METOPROLOL [Concomitant]
  11. LYRICA [Concomitant]
  12. VITAMIN B12 [Concomitant]

REACTIONS (9)
  - Pancreatic carcinoma [Unknown]
  - Second primary malignancy [Unknown]
  - Gastrointestinal ulcer [Unknown]
  - Gastric perforation [Unknown]
  - Gastrointestinal haemorrhage [Unknown]
  - Haematochezia [Unknown]
  - Anaemia [Unknown]
  - Nausea [Unknown]
  - Eye oedema [Unknown]
